FAERS Safety Report 5320699-5 (Version None)
Quarter: 2007Q2

REPORT INFORMATION
  Report Type: 
  Country: None (occurrence: None)
  Receive Date: 20070509
  Receipt Date: 20070430
  Transmission Date: 20071010
  Serious: Yes (Death, Hospitalization)
  Sender: FDA-Public Use
  Company Number: ZM-GILEAD-2007-0011851

PATIENT
  Sex: Female
  Weight: 73.3 kg

DRUGS (3)
  1. EMTRICITABINE/TENOFOVIR DISOPROXIL FUMARATE [Suspect]
     Indication: HIV INFECTION
     Route: 048
     Dates: start: 20070220, end: 20070313
  2. NEVIRAPINE [Suspect]
     Indication: HIV INFECTION
     Route: 048
     Dates: start: 20070220, end: 20070313
  3. BACTRIM [Concomitant]

REACTIONS (6)
  - DEATH [None]
  - EPISTAXIS [None]
  - IMMUNE RECONSTITUTION SYNDROME [None]
  - MENINGITIS TUBERCULOUS [None]
  - MUSCULOSKELETAL PAIN [None]
  - WEIGHT DECREASED [None]
